FAERS Safety Report 24215244 (Version 1)
Quarter: 2024Q3

REPORT INFORMATION
  Report Type: Spontaneous
  Country: BR (occurrence: BR)
  Receive Date: 20240816
  Receipt Date: 20240816
  Transmission Date: 20241016
  Serious: Yes (Death, Hospitalization, Other)
  Sender: NOVITIUM PHARMA
  Company Number: BR-NOVITIUMPHARMA-2024BRNVP01597

PATIENT
  Age: 56 Year
  Sex: Female
  Weight: 49 kg

DRUGS (12)
  1. PYRAZINAMIDE [Suspect]
     Active Substance: PYRAZINAMIDE
     Indication: Pulmonary tuberculosis
     Dates: start: 20230112
  2. PYRAZINAMIDE [Suspect]
     Active Substance: PYRAZINAMIDE
     Dates: start: 20230313
  3. PYRAZINAMIDE [Suspect]
     Active Substance: PYRAZINAMIDE
     Dates: start: 20230326
  4. RIFAMPIN [Concomitant]
     Active Substance: RIFAMPIN
     Indication: Pulmonary tuberculosis
     Dates: start: 20230112
  5. RIFAMPIN [Concomitant]
     Active Substance: RIFAMPIN
     Dates: start: 20230313
  6. RIFAMPIN [Concomitant]
     Active Substance: RIFAMPIN
     Dates: start: 20230326
  7. ETHAMBUTOL [Concomitant]
     Active Substance: ETHAMBUTOL HYDROCHLORIDE
     Indication: Pulmonary tuberculosis
     Dates: start: 20230112
  8. ETHAMBUTOL [Concomitant]
     Active Substance: ETHAMBUTOL HYDROCHLORIDE
     Dates: start: 20230313
  9. ETHAMBUTOL [Concomitant]
     Active Substance: ETHAMBUTOL HYDROCHLORIDE
     Dates: start: 20230326
  10. ISONIAZID [Concomitant]
     Active Substance: ISONIAZID
     Indication: Pulmonary tuberculosis
     Dates: start: 20230112
  11. ISONIAZID [Concomitant]
     Active Substance: ISONIAZID
     Dates: start: 20230313
  12. ISONIAZID [Concomitant]
     Active Substance: ISONIAZID
     Dates: start: 20230326

REACTIONS (2)
  - Oesophagitis ulcerative [Fatal]
  - Anaemia [Fatal]

NARRATIVE: CASE EVENT DATE: 20230316
